FAERS Safety Report 16048433 (Version 3)
Quarter: 2019Q2

REPORT INFORMATION
  Report Type: Spontaneous
  Country: US (occurrence: US)
  Receive Date: 20190307
  Receipt Date: 20190510
  Transmission Date: 20190711
  Serious: No
  Sender: FDA-Public Use
  Company Number: US-ASTRAZENECA-2019SE22998

PATIENT
  Age: 25563 Day
  Sex: Female
  Weight: 99.8 kg

DRUGS (4)
  1. LANTUS SOLOSTAR [Concomitant]
     Active Substance: INSULIN GLARGINE
  2. BYDUREON BCISE [Suspect]
     Active Substance: EXENATIDE
     Indication: TYPE 2 DIABETES MELLITUS
     Route: 058
     Dates: start: 201811, end: 20190124
  3. BYDUREON BCISE [Suspect]
     Active Substance: EXENATIDE
     Indication: TYPE 2 DIABETES MELLITUS
     Route: 058
     Dates: start: 20190208
  4. LANTUS SOLOSTAR [Concomitant]
     Active Substance: INSULIN GLARGINE
     Dosage: LAST NIGHT SHE ONLY TOOK 30 UNITS
     Dates: start: 201904

REACTIONS (6)
  - Rash generalised [Recovering/Resolving]
  - Device leakage [Unknown]
  - Product dose omission [Unknown]
  - Blister [Unknown]
  - Device malfunction [Unknown]
  - Skin mass [Unknown]

NARRATIVE: CASE EVENT DATE: 20180120
